FAERS Safety Report 5441914-3 (Version None)
Quarter: 2007Q3

REPORT INFORMATION
  Report Type: 
  Country: None (occurrence: None)
  Receive Date: 20070904
  Receipt Date: 20070828
  Transmission Date: 20080115
  Serious: Yes (Other)
  Sender: FDA-Public Use
  Company Number: US-ELI_LILLY_AND_COMPANY-US200703001227

PATIENT
  Age: 55 Year
  Sex: Female
  Weight: 72.562 kg

DRUGS (6)
  1. SOMATROPIN [Suspect]
     Indication: GROWTH HORMONE DEFICIENCY
     Dosage: 0.75 MG, DAILY (1/D)
     Route: 058
     Dates: start: 19971120, end: 20070228
  2. PREMARIN [Concomitant]
     Indication: HORMONE REPLACEMENT THERAPY
     Dosage: 0.9 MG, UNK
     Dates: start: 19990202
  3. SYNTHROID [Concomitant]
     Indication: HYPOTHYROIDISM
     Dates: start: 20000202
  4. LIPITOR [Concomitant]
     Indication: BLOOD CHOLESTEROL INCREASED
     Dosage: 20 MG, UNK
     Dates: start: 19990202
  5. ZELNORM [Concomitant]
     Indication: GASTRIC DISORDER
     Dates: start: 20031201
  6. LISINOPRIL [Concomitant]
     Indication: BLOOD PRESSURE INCREASED

REACTIONS (1)
  - NON-HODGKIN'S LYMPHOMA [None]
